FAERS Safety Report 8074240-7 (Version None)
Quarter: 2012Q1

REPORT INFORMATION
  Report Type: 
  Country: None (occurrence: None)
  Receive Date: 20120126
  Receipt Date: 20120119
  Transmission Date: 20120608
  Serious: Yes (Hospitalization)
  Sender: FDA-Public Use
  Company Number: CA-ABBOTT-12P-028-0895388-00

PATIENT
  Sex: Female
  Weight: 69.462 kg

DRUGS (7)
  1. METHOTREXATE [Concomitant]
     Indication: CROHN'S DISEASE
     Route: 058
  2. LORAZEPAM [Concomitant]
     Indication: ANXIETY
     Route: 048
  3. ACETAMINOPHEN [Concomitant]
     Indication: PAIN
     Route: 048
  4. HUMIRA [Suspect]
     Indication: CROHN'S DISEASE
     Route: 058
     Dates: start: 20110205
  5. BRICANYL [Concomitant]
     Indication: HYPERSENSITIVITY
     Route: 055
  6. KOFFEX DM [Concomitant]
     Indication: HYPERSENSITIVITY
     Route: 048
  7. CITALOPRAM HYDROBROMIDE [Concomitant]
     Indication: DEPRESSION
     Route: 048

REACTIONS (5)
  - JOINT SWELLING [None]
  - PYREXIA [None]
  - ERYTHEMA [None]
  - HYPOAESTHESIA [None]
  - CELLULITIS [None]
